FAERS Safety Report 6371574-9 (Version None)
Quarter: 2009Q3

REPORT INFORMATION
  Report Type: 
  Country: None (occurrence: None)
  Receive Date: 20090923
  Receipt Date: 20080424
  Transmission Date: 20100115
  Serious: No
  Sender: FDA-Public Use
  Company Number: US-ASTRAZENECA-2007UW27677

PATIENT
  Age: 37 Year
  Sex: Male

DRUGS (11)
  1. SEROQUEL [Suspect]
     Indication: SLEEP DISORDER
     Dosage: 100MG-200MG
     Route: 048
     Dates: start: 20061001
  2. SEROQUEL [Suspect]
     Indication: ANXIETY
     Dosage: 100MG-200MG
     Route: 048
     Dates: start: 20061001
  3. SEROQUEL [Suspect]
     Indication: DEPRESSION
     Dosage: 100MG-200MG
     Route: 048
     Dates: start: 20061001
  4. ZYRTEC [Concomitant]
  5. PREVACID [Concomitant]
  6. ACTOS [Concomitant]
  7. METFORMIN HCL [Concomitant]
  8. ATENOLOL [Concomitant]
  9. ALPRAZOLAM [Concomitant]
  10. OXYCODONE [Concomitant]
  11. GLIPIZIDE [Concomitant]

REACTIONS (1)
  - DIABETES MELLITUS [None]
